FAERS Safety Report 4340171-9 (Version None)
Quarter: 2004Q1

REPORT INFORMATION
  Report Type: 
  Country: None (occurrence: None)
  Receive Date: 20040329
  Receipt Date: 20040130
  Transmission Date: 20041129
  Serious: No
  Sender: FDA-Public Use
  Company Number: 04P-163-0249346-00

PATIENT
  Age: 61 Year
  Sex: Female
  Weight: 56.6996 kg

DRUGS (7)
  1. HUMIRA [Suspect]
     Indication: RHEUMATOID ARTHRITIS
     Dosage: 40 MG, 1 IN 2 WK, SUBCUTANEOUS
     Route: 058
     Dates: start: 20031119
  2. ATENOLOL [Concomitant]
  3. PAROXETINE HCL [Concomitant]
  4. PREDNISONE [Concomitant]
  5. ALPRAZOLAM [Concomitant]
  6. VICODIN [Concomitant]
  7. ASPIRIN [Concomitant]

REACTIONS (5)
  - DIARRHOEA [None]
  - DIZZINESS [None]
  - INJECTION SITE NODULE [None]
  - PARAESTHESIA [None]
  - TINNITUS [None]
